FAERS Safety Report 4785087-9 (Version None)
Quarter: 2005Q3

REPORT INFORMATION
  Report Type: 
  Country: None (occurrence: None)
  Receive Date: 20050930
  Receipt Date: 20050921
  Transmission Date: 20060218
  Serious: Yes (Death, Life-Threatening)
  Sender: FDA-Public Use
  Company Number: KR-JNJFOC-20050903307

PATIENT
  Sex: Female
  Weight: 48 kg

DRUGS (3)
  1. SPORANOX [Suspect]
     Route: 042
     Dates: start: 20050914, end: 20050914
  2. VANCOMYCIN [Concomitant]
     Indication: INFECTION
     Route: 042
     Dates: start: 20050909
  3. HEXAMIDINE [Concomitant]
     Route: 048
     Dates: start: 20050826

REACTIONS (3)
  - ANAPHYLACTIC SHOCK [None]
  - ANAPHYLACTOID REACTION [None]
  - SEPTIC SHOCK [None]
